FAERS Safety Report 20701294 (Version 1)
Quarter: 2022Q2

REPORT INFORMATION
  Report Type: Spontaneous
  Country: PL (occurrence: PL)
  Receive Date: 20220412
  Receipt Date: 20220412
  Transmission Date: 20220721
  Serious: Yes (Hospitalization)
  Sender: FDA-Public Use
  Company Number: PL-AstraZeneca-2021A679790

PATIENT
  Age: 70 Year
  Sex: Female

DRUGS (22)
  1. PACLITAXEL [Suspect]
     Active Substance: PACLITAXEL
     Indication: Endometrial cancer
     Dosage: 175MG/M2,FREQUENCY TIME 3WEEKS, DURATION 85DAYS
     Route: 042
     Dates: start: 20210420, end: 20210713
  2. CARBOPLATIN [Suspect]
     Active Substance: CARBOPLATIN
     Indication: Endometrial cancer
     Dosage: FREQUENCY TIME : 1TOTAL, DURATION 60MINUTES, 300MG
     Route: 042
  3. CARBOPLATIN [Suspect]
     Active Substance: CARBOPLATIN
     Dosage: 395MG, FREQUENCY TIME 1TOTAL, DURATION 60MINUTES
     Route: 042
  4. CARBOPLATIN [Suspect]
     Active Substance: CARBOPLATIN
     Dosage: 305MG, FREQUENCY TIME 1TOTAL, DURATION 60MINUTES
     Route: 042
  5. CARBOPLATIN [Suspect]
     Active Substance: CARBOPLATIN
     Dosage: 280MG, FREQUENCY TIME1TOTAL,DURATION 60MINUTES
     Route: 042
  6. CARBOPLATIN [Suspect]
     Active Substance: CARBOPLATIN
     Dosage: 290MG, FREQUENCY TIME 1TOTAL, DURATION 60MINUTES
     Route: 042
  7. FILGRASTIM [Concomitant]
     Active Substance: FILGRASTIM
     Indication: Prophylaxis
     Dosage: 1DF, FREQUENCY TIME 1DAYS
     Route: 058
     Dates: start: 20210512
  8. ATOSSA [Concomitant]
     Indication: Nausea
     Dosage: 8MG, FREQUENCY TIME 2DAYS
     Route: 048
     Dates: start: 20210420
  9. ATOSSA [Concomitant]
     Indication: Vomiting
  10. MAGNESIUM SULFATE [Concomitant]
     Active Substance: MAGNESIUM SULFATE
     Indication: Fluid replacement
     Dosage: 1 AMPOULE DAILY, DURATION 1DAYS
     Route: 042
     Dates: start: 20210419, end: 20210419
  11. MAGNESIUM SULFATE [Concomitant]
     Active Substance: MAGNESIUM SULFATE
     Dosage: 1 AMPOULE BEFORE EACH CYCLE OF CHEMOTHERAPY
     Route: 042
     Dates: start: 20210420
  12. CLEMASTINE FUMARATE [Concomitant]
     Active Substance: CLEMASTINE FUMARATE
     Indication: Prophylaxis
     Dosage: 2 MG BEFORE EACH CYCLE OF CHEMOTHERAPY
     Route: 042
     Dates: start: 20210420
  13. ONDANSETRON [Concomitant]
     Active Substance: ONDANSETRON
     Indication: Prophylaxis
     Dosage: 8 MG BEFORE EACH CYCLE OF CHEMOTHERAPY
     Route: 042
     Dates: start: 20210420
  14. HYDROCORTISONE [Concomitant]
     Active Substance: HYDROCORTISONE
     Indication: Prophylaxis
     Dosage: 200 MG BEFORE EACH CYCLE OF CHEMOTHERAPY
     Route: 042
     Dates: start: 20210420
  15. SODIUM CHLORIDE [Concomitant]
     Active Substance: SODIUM CHLORIDE
     Indication: Fluid replacement
     Dosage: 1000 ML BEFORE EACH CYCLE OF CHEMOTHERAPY
     Route: 042
     Dates: start: 20210420
  16. SODIUM CHLORIDE [Concomitant]
     Active Substance: SODIUM CHLORIDE
     Dosage: 250ML, FREQUENCY TIME 1DAYS, DURATION 1DAYS
     Route: 042
     Dates: start: 20210419, end: 20210419
  17. EUTHYROX [Concomitant]
     Active Substance: LEVOTHYROXINE SODIUM
     Indication: Autoimmune thyroiditis
     Dosage: 138MG, FREQUENCY TIME 1DAYS
     Route: 048
     Dates: start: 2010
  18. AUGMENTIN [Concomitant]
     Active Substance: AMOXICILLIN\CLAVULANATE POTASSIUM
     Indication: Urinary tract infection
     Dosage: 1000MG,FREQUENCY TIME 12HRS, DURATION 7DAYS
     Route: 048
     Dates: start: 20210804, end: 20210810
  19. TORECAN [Concomitant]
     Active Substance: THIETHYLPERAZINE MALATE
     Indication: Constipation
     Dosage: 1DF,FREQUENCY TIME 12HRS
     Route: 054
     Dates: start: 20210420
  20. DEXAMETHASONE PHOSPHATE [Concomitant]
     Active Substance: DEXAMETHASONE PHOSPHATE
     Indication: Prophylaxis
     Dosage: 20 MG BEFORE EACH CYCLE OF CHEMOTHERAPY
     Route: 042
     Dates: start: 20210420
  21. FUROSEMIDE [Concomitant]
     Active Substance: FUROSEMIDE
     Indication: Peripheral swelling
     Dosage: 1 AMPOULE, BEFORE EACH CYCLE OF CHEMOTHERAPY
     Route: 042
     Dates: start: 20210419
  22. FUROSEMIDE [Concomitant]
     Active Substance: FUROSEMIDE
     Indication: Premedication
     Dosage: 40MG, FREQUENCY TIME 2DAYS
     Route: 048
     Dates: start: 20210301

REACTIONS (1)
  - Thrombosis [Recovered/Resolved]

NARRATIVE: CASE EVENT DATE: 20210811
